FAERS Safety Report 6602221-6 (Version None)
Quarter: 2010Q1

REPORT INFORMATION
  Report Type: 
  Country: None (occurrence: None)
  Receive Date: 20100225
  Receipt Date: 20100217
  Transmission Date: 20100710
  Serious: Yes (Disabling)
  Sender: FDA-Public Use
  Company Number: FR-B.I. PHARMACEUTICALS,INC./RIDGEFIELD-2010-FF-00156FF

PATIENT
  Sex: Female

DRUGS (10)
  1. SIFROL [Suspect]
     Dosage: 0.09 MG
     Route: 048
  2. SIFROL [Suspect]
     Dosage: 0.18 MG
     Route: 048
     Dates: start: 20090929, end: 20091004
  3. METFORMIN HCL [Concomitant]
  4. BISOPROLOL [Concomitant]
  5. LERCAN [Concomitant]
  6. OLMETEC [Concomitant]
  7. FLUDEX [Concomitant]
     Route: 048
  8. PRAVASTATIN [Concomitant]
  9. NOVONORM [Concomitant]
  10. LANTUS [Concomitant]

REACTIONS (2)
  - CONDITION AGGRAVATED [None]
  - MIGRAINE [None]
